FAERS Safety Report 20135853 (Version 2)
Quarter: 2021Q4

REPORT INFORMATION
  Report Type: Report from Study
  Country: US (occurrence: US)
  Receive Date: 20211201
  Receipt Date: 20211216
  Transmission Date: 20220303
  Serious: Yes (Hospitalization)
  Sender: FDA-Public Use
  Company Number: US-GLAXOSMITHKLINE-US2021GSK231692

PATIENT
  Age: 70 Year
  Sex: Female
  Weight: 99.3 kg

DRUGS (32)
  1. DOSTARLIMAB [Suspect]
     Active Substance: DOSTARLIMAB
     Indication: Breast cancer
     Dosage: 500 MG, Z-ONCE AT 500ML/HR OVER 30
     Route: 042
     Dates: start: 20210927, end: 20210927
  2. PACLITAXEL [Suspect]
     Active Substance: PACLITAXEL
     Indication: Breast cancer
     Dosage: 15 MG, QD
     Route: 048
     Dates: start: 20210927
  3. ENCEQUIDAR MESYLATE MONOHYDRATE [Suspect]
     Active Substance: ENCEQUIDAR MESYLATE MONOHYDRATE
     Dosage: 30 MG, QD
     Route: 048
     Dates: start: 20210927
  4. CARBOPLATIN [Suspect]
     Active Substance: CARBOPLATIN
     Indication: Breast cancer
     Dosage: 175.35 MG, Z-ONCE AT 250 ML/HR OVER 30
     Route: 042
     Dates: start: 20210927, end: 20210927
  5. ZOFRAN [Suspect]
     Active Substance: ONDANSETRON HYDROCHLORIDE
     Indication: Nausea
     Dosage: 8 MG
     Route: 048
     Dates: start: 20210927
  6. AMMONIUM LACTATE [Concomitant]
     Active Substance: AMMONIUM LACTATE
     Indication: Hyperkeratosis
     Dosage: 12 %, QD
     Route: 061
     Dates: start: 20160101
  7. AMMONIUM LACTATE [Concomitant]
     Active Substance: AMMONIUM LACTATE
     Dosage: 12 %, QD
     Route: 061
     Dates: start: 20210101
  8. TENORMIN [Concomitant]
     Active Substance: ATENOLOL
     Indication: Hypertension
     Dosage: 50 MG, QD
     Route: 048
     Dates: start: 20060101
  9. ZYRTEC [Concomitant]
     Active Substance: CETIRIZINE HYDROCHLORIDE
     Indication: Rhinitis allergic
     Dosage: 10 MG, QD
     Route: 048
     Dates: start: 20190101
  10. COLACE [Concomitant]
     Active Substance: DOCUSATE SODIUM
     Indication: Constipation
     Dosage: 100 MG, BID
     Route: 048
     Dates: start: 20160101
  11. MICROZIDE [Concomitant]
     Active Substance: HYDROCHLOROTHIAZIDE
     Indication: Hypertension
     Dosage: 12.5 MG, BID
     Route: 048
     Dates: start: 20110101
  12. EMLA [Concomitant]
     Active Substance: LIDOCAINE\PRILOCAINE
     Indication: Drug therapy
     Dosage: UNK, Z-AS NEEDED
     Route: 061
     Dates: start: 20210923
  13. IMODIUM [Concomitant]
     Active Substance: LOPERAMIDE HYDROCHLORIDE
     Indication: Diarrhoea
     Dosage: 2 MG, Z PRN
     Route: 048
     Dates: start: 20211006
  14. COZAAR [Concomitant]
     Active Substance: LOSARTAN POTASSIUM
     Indication: Hypertension
     Dosage: 100 MG, QD
     Route: 048
     Dates: start: 20060101
  15. PATANOL [Concomitant]
     Active Substance: OLOPATADINE HYDROCHLORIDE
     Indication: Rhinitis allergic
     Dosage: 1 GTT, BID
     Route: 047
     Dates: start: 20160101
  16. ELIQUIS [Concomitant]
     Active Substance: APIXABAN
     Indication: Atrial fibrillation
     Dosage: 5 MG, BID
     Route: 048
     Dates: start: 20211110
  17. METOPROLOL SUCCINATE [Concomitant]
     Active Substance: METOPROLOL SUCCINATE
     Indication: Atrial fibrillation
     Dosage: 100 MG, QD
     Route: 048
     Dates: start: 20211110
  18. DELTASONE [Concomitant]
     Active Substance: PREDNISONE
     Indication: Colitis
     Dosage: 10 MG, QD
     Route: 048
     Dates: start: 20211118, end: 20211130
  19. LOSARTAN [Concomitant]
     Active Substance: LOSARTAN
     Indication: Hypertension
  20. COMPAZINE [Concomitant]
     Active Substance: PROCHLORPERAZINE MALEATE
     Indication: Nausea
     Dosage: 5 MG, PRN
     Dates: start: 20211110
  21. SCOPOLAMINE [Concomitant]
     Active Substance: SCOPOLAMINE
     Indication: Nausea
     Dosage: TRANSDERMAL PATCH EVERY 72 HOURS PRN, PRN
     Dates: start: 20211110
  22. SCOPOLAMINE [Concomitant]
     Active Substance: SCOPOLAMINE
     Indication: Vomiting
  23. MYLICON (SIMETHICONE) [Concomitant]
     Indication: Flatulence
     Dosage: 20 MG, QID
     Dates: start: 20211110
  24. DESYREL [Concomitant]
     Active Substance: TRAZODONE HYDROCHLORIDE
     Indication: Insomnia
     Dosage: 50 MG, QD
     Route: 048
     Dates: start: 20211110
  25. ZOFRAN ODT [Concomitant]
     Active Substance: ONDANSETRON HYDROCHLORIDE
     Indication: Nausea
     Dosage: 4 MG, TID (3 TIMES A DAY AS NEEDED UP TO 7 DAYS)
     Route: 048
     Dates: start: 20211110, end: 20211125
  26. ZOFRAN ODT [Concomitant]
     Active Substance: ONDANSETRON HYDROCHLORIDE
     Indication: Vomiting
  27. PREDNISONE [Concomitant]
     Active Substance: PREDNISONE
     Dosage: 50 MG, QD (FOR 4 DAYS)
     Route: 048
  28. PREDNISONE [Concomitant]
     Active Substance: PREDNISONE
     Dosage: 40 MG, QD (FOR 4 DAYS)
     Route: 048
  29. PREDNISONE [Concomitant]
     Active Substance: PREDNISONE
     Dosage: 20 MG, QD (FOR 4 DAYS)
     Route: 048
  30. PREDNISONE [Concomitant]
     Active Substance: PREDNISONE
     Dosage: 20 MG, QD (FOR 4 DAYS)
     Route: 048
  31. PACLITAXEL [Suspect]
     Active Substance: PACLITAXEL
  32. ENCEQUIDAR MESYLATE MONOHYDRATE [Suspect]
     Active Substance: ENCEQUIDAR MESYLATE MONOHYDRATE

REACTIONS (2)
  - Diarrhoea [Recovered/Resolved]
  - Dysarthria [Recovered/Resolved]

NARRATIVE: CASE EVENT DATE: 20211105
